FAERS Safety Report 18693517 (Version 2)
Quarter: 2021Q1

REPORT INFORMATION
  Report Type: Spontaneous
  Country: US (occurrence: US)
  Receive Date: 20210104
  Receipt Date: 20210128
  Transmission Date: 20210419
  Serious: Yes (Life-Threatening, Hospitalization, Other)
  Sender: FDA-Public Use
  Company Number: US-ACCORD-212782

PATIENT
  Age: 37 Year
  Sex: Male

DRUGS (1)
  1. HYDROXYCHLOROQUINE [Suspect]
     Active Substance: HYDROXYCHLOROQUINE
     Dosage: EIGHTY 200?MG TABLETS
     Route: 048

REACTIONS (9)
  - Intentional overdose [Unknown]
  - Electrocardiogram QT prolonged [Recovered/Resolved]
  - Hypokalaemia [Recovered/Resolved]
  - Cardiac dysfunction [Recovered/Resolved]
  - Atrioventricular block [Recovered/Resolved]
  - Mental status changes [Recovered/Resolved]
  - Toxicity to various agents [Unknown]
  - Electrocardiogram QRS complex prolonged [Recovered/Resolved]
  - Pneumonia aspiration [Recovered/Resolved]
